FAERS Safety Report 17878055 (Version 1)
Quarter: 2020Q2

REPORT INFORMATION
  Report Type: Spontaneous
  Country: CN (occurrence: CN)
  Receive Date: 20200609
  Receipt Date: 20200609
  Transmission Date: 20200714
  Serious: Yes (Other)
  Sender: FDA-Public Use
  Company Number: CN-BAXTER-2020BAX011543

PATIENT
  Age: 25 Year
  Sex: Male

DRUGS (13)
  1. PACLITAXEL. [Suspect]
     Active Substance: PACLITAXEL
     Indication: LUNG NEOPLASM MALIGNANT
     Dosage: LIBITAI 865MG IV. DRIP D1 + CARBOPLATIN 777 MG IV. DRIP D1 + AVASTIN 500 MG IV. DRIP D1
     Route: 041
     Dates: start: 20190606
  2. PACLITAXEL. [Suspect]
     Active Substance: PACLITAXEL
     Route: 041
     Dates: start: 20190823, end: 20190823
  3. PACLITAXEL. [Suspect]
     Active Substance: PACLITAXEL
     Dosage: LIBITAI 865MG IV. DRIP D1 + CARBOPLATIN 777 MG IV. DRIP D1 + AVASTIN 500 MG IV. DRIP D1
     Route: 041
     Dates: start: 20190704
  4. 0.9% SODIUM CHLORIDE INJECTION [Suspect]
     Active Substance: SODIUM CHLORIDE
     Indication: MEDICATION DILUTION
     Route: 041
     Dates: start: 20190823, end: 20190823
  5. CARBOPLATIN. [Suspect]
     Active Substance: CARBOPLATIN
     Dosage: LIBITAI 865MG IV. DRIP D1 + CARBOPLATIN 777 MG IV. DRIP D1 + AVASTIN 500 MG IV. DRIP D1
     Route: 041
     Dates: start: 20190704
  6. TROPISETRON HYDROCHLORIDE [Suspect]
     Active Substance: TROPISETRON HYDROCHLORIDE
     Indication: LUNG NEOPLASM MALIGNANT
     Route: 041
     Dates: start: 20190823, end: 20190823
  7. CARBOPLATIN. [Suspect]
     Active Substance: CARBOPLATIN
     Route: 041
     Dates: start: 20190823, end: 20190824
  8. POLYENE PHOSPHATIDYLCHOLINE [Suspect]
     Active Substance: PHOSPHOLIPID
     Indication: PROPHYLAXIS
     Route: 065
     Dates: start: 20190703
  9. AVASTIN [Suspect]
     Active Substance: BEVACIZUMAB
     Indication: LUNG NEOPLASM MALIGNANT
     Dosage: LIBITAI 865MG IV. DRIP D1 + CARBOPLATIN 777 MG IV. DRIP D1 + AVASTIN 500 MG IV. DRIP D1
     Route: 041
     Dates: start: 20190606
  10. POLYENE PHOSPHATIDYLCHOLINE [Suspect]
     Active Substance: PHOSPHOLIPID
     Route: 065
     Dates: start: 20190725
  11. 0.9% SODIUM CHLORIDE INJECTION [Suspect]
     Active Substance: SODIUM CHLORIDE
     Indication: MEDICATION DILUTION
     Route: 041
     Dates: start: 20190823, end: 20190823
  12. CARBOPLATIN. [Suspect]
     Active Substance: CARBOPLATIN
     Indication: LUNG NEOPLASM MALIGNANT
     Dosage: LIBITAI 865MG IV. DRIP D1 + CARBOPLATIN 777 MG IV. DRIP D1 + AVASTIN 500 MG IV. DRIP D1
     Route: 041
     Dates: start: 20190606
  13. AVASTIN [Suspect]
     Active Substance: BEVACIZUMAB
     Dosage: LIBITAI 865MG IV. DRIP D1 + CARBOPLATIN 777 MG IV. DRIP D1 + AVASTIN 500 MG IV. DRIP D1
     Route: 041
     Dates: start: 20190704

REACTIONS (1)
  - Bone marrow failure [Recovering/Resolving]

NARRATIVE: CASE EVENT DATE: 20190828
